FAERS Safety Report 15863448 (Version 1)
Quarter: 2018Q4

REPORT INFORMATION
  Report Type: Spontaneous
  Country: US (occurrence: US)
  Receive Date: 20181212
  Receipt Date: 20181212
  Transmission Date: 20190205
  Serious: Yes (Other)
  Sender: FDA-Public Use
  Company Number: None

PATIENT
  Age: 58 Year
  Sex: Female
  Weight: 74.84 kg

DRUGS (1)
  1. VENLAFAXINE ER 150 [Suspect]
     Active Substance: VENLAFAXINE HYDROCHLORIDE
     Indication: DEPRESSION
     Dosage: ?          OTHER DOSE:150 ;?
     Route: 048
     Dates: start: 20170404, end: 20170411

REACTIONS (3)
  - Irregular sleep wake rhythm disorder [None]
  - Product substitution issue [None]
  - Urticaria [None]
